FAERS Safety Report 10997476 (Version 1)
Quarter: 2015Q2

REPORT INFORMATION
  Report Type: Spontaneous
  Country: US (occurrence: None)
  Receive Date: 20150407
  Receipt Date: 20150407
  Transmission Date: 20150821
  Serious: Yes (Hospitalization, Disabling, Other)
  Sender: FDA-Public Use
  Company Number: None

PATIENT
  Age: 78 Year
  Sex: Female
  Weight: 52.16 kg

DRUGS (4)
  1. RECLAST [Concomitant]
     Active Substance: ZOLEDRONIC ACID
  2. FOLIC ACID. [Concomitant]
     Active Substance: FOLIC ACID
  3. PIROXICAM. [Concomitant]
     Active Substance: PIROXICAM
  4. SYNTHROID [Suspect]
     Active Substance: LEVOTHYROXINE SODIUM
     Indication: HYPOTHYROIDISM
     Dosage: ONE PILL ONCE/DAY BY MOUTH
     Route: 048
     Dates: start: 2008

REACTIONS (2)
  - Dizziness [None]
  - Balance disorder [None]
